FAERS Safety Report 25886164 (Version 2)
Quarter: 2025Q4

REPORT INFORMATION
  Report Type: Spontaneous
  Country: US (occurrence: US)
  Receive Date: 20251006
  Receipt Date: 20251202
  Transmission Date: 20260119
  Serious: No
  Sender: DR REDDYS
  Company Number: US-DRL-USA-USA/2025/09/014593

PATIENT
  Sex: Female

DRUGS (1)
  1. CLONIDINE [Suspect]
     Active Substance: CLONIDINE
     Indication: Product used for unknown indication
     Route: 062

REACTIONS (2)
  - Product adhesion issue [Unknown]
  - Application site rash [Unknown]

NARRATIVE: CASE EVENT DATE: 20250916
